FAERS Safety Report 4856126-1 (Version None)
Quarter: 2005Q4

REPORT INFORMATION
  Report Type: 
  Country: None (occurrence: None)
  Receive Date: 20051216
  Receipt Date: 20051005
  Transmission Date: 20060501
  Serious: Yes (Hospitalization)
  Sender: FDA-Public Use
  Company Number: CA-MERCK-0510CAN00112

PATIENT
  Age: 77 Year
  Sex: Female
  Weight: 84 kg

DRUGS (10)
  1. VIOXX [Suspect]
     Indication: ARTHRITIS
     Route: 048
     Dates: start: 20000418, end: 20000501
  2. VIOXX [Suspect]
     Route: 048
     Dates: start: 20000131, end: 20000401
  3. METFORMIN HYDROCHLORIDE [Concomitant]
     Route: 065
  4. GLYBURIDE [Concomitant]
     Route: 065
  5. LEVOTHYROXINE SODIUM [Concomitant]
     Route: 065
  6. PROPRANOLOL HYDROCHLORIDE [Concomitant]
     Route: 065
  7. RANITIDINE HYDROCHLORIDE [Concomitant]
     Route: 065
  8. FUROSEMIDE [Concomitant]
     Route: 065
  9. AMITRIPTYLINE HYDROCHLORIDE [Concomitant]
     Route: 065
  10. ESTROGENS, CONJUGATED [Concomitant]
     Route: 065

REACTIONS (17)
  - ALPHA HAEMOLYTIC STREPTOCOCCAL INFECTION [None]
  - BRONCHOPNEUMONIA [None]
  - CEREBROVASCULAR ACCIDENT [None]
  - ENTEROBACTER INFECTION [None]
  - ESCHERICHIA URINARY TRACT INFECTION [None]
  - GENITAL PRURITUS FEMALE [None]
  - HYPERGLYCAEMIA [None]
  - HYPERSENSITIVITY [None]
  - KLEBSIELLA INFECTION [None]
  - SEPSIS [None]
  - TRANSIENT ISCHAEMIC ATTACK [None]
  - URINARY TRACT INFECTION [None]
  - URINARY TRACT INFECTION ENTEROCOCCAL [None]
  - URINARY TRACT INFECTION PSEUDOMONAL [None]
  - UROSEPSIS [None]
  - VAGINAL BURNING SENSATION [None]
  - VULVOVAGINAL MYCOTIC INFECTION [None]
